FAERS Safety Report 7183695-1 (Version None)
Quarter: 2010Q4

REPORT INFORMATION
  Report Type: 
  Country: None (occurrence: None)
  Receive Date: 20101220
  Receipt Date: 20101220
  Transmission Date: 20110411
  Serious: Yes (Hospitalization)
  Sender: FDA-Public Use
  Company Number: None

PATIENT
  Age: 67 Year
  Sex: Male
  Weight: 82 kg

DRUGS (10)
  1. ASPIRIN [Suspect]
     Indication: PERIPHERAL VASCULAR DISORDER
     Dosage: 81MG DAILY PO CHRONIC
     Route: 048
  2. PLAVIX [Suspect]
     Indication: PERIPHERAL VASCULAR DISORDER
     Dosage: 75MG 93H PO CHRONIC
     Route: 048
  3. LIPITOR [Concomitant]
  4. DEFROL [Concomitant]
  5. INSULIN [Concomitant]
  6. RESTORIL [Concomitant]
  7. ACTOS [Concomitant]
  8. HYDROCHLOROTHIAZIDE [Concomitant]
  9. SPIRIVA [Concomitant]
  10. PLETAL [Concomitant]

REACTIONS (3)
  - ANAEMIA [None]
  - GASTROINTESTINAL HAEMORRHAGE [None]
  - OESOPHAGITIS ULCERATIVE [None]
